FAERS Safety Report 17987364 (Version 1)
Quarter: 2020Q3

REPORT INFORMATION
  Report Type: Other
  Country: FR (occurrence: FR)
  Receive Date: 20200707
  Receipt Date: 20200707
  Transmission Date: 20201103
  Serious: Yes (Hospitalization)
  Sender: FDA-Public Use
  Company Number: FR-CADILA HEALTHCARE LIMITED-FR-ZYDUS-052913

PATIENT

DRUGS (4)
  1. CANNABIS [Suspect]
     Active Substance: CANNABIS SATIVA SUBSP. INDICA TOP
     Indication: DRUG ABUSE
     Dosage: UNK (UNSPECIFIED)
     Route: 055
     Dates: start: 1990
  2. ALCOOL [Suspect]
     Active Substance: ALCOHOL
     Indication: ALCOHOL USE
     Dosage: 15 TO 18 U / DAY
     Route: 048
     Dates: start: 202004, end: 20200502
  3. TRAMADOL. [Suspect]
     Active Substance: TRAMADOL
     Indication: DRUG ABUSE
     Dosage: UNK (UNSPECIFIED)
     Route: 048
     Dates: start: 202003, end: 202004
  4. CODOLIPRANE [Suspect]
     Active Substance: ACETAMINOPHEN\CODEINE PHOSPHATE
     Indication: DRUG ABUSE
     Dosage: 6 TO 7 CP / DAY
     Route: 048
     Dates: start: 20200423, end: 20200502

REACTIONS (3)
  - Housebound [Recovered/Resolved]
  - Substance abuse [Not Recovered/Not Resolved]
  - Drug abuse [Not Recovered/Not Resolved]

NARRATIVE: CASE EVENT DATE: 1990
